FAERS Safety Report 24275311 (Version 3)
Quarter: 2024Q4

REPORT INFORMATION
  Report Type: Report from Study
  Country: US (occurrence: US)
  Receive Date: 20240903
  Receipt Date: 20241018
  Transmission Date: 20250115
  Serious: Yes (Other)
  Sender: JOHNSON AND JOHNSON
  Company Number: US-JNJFOC-20240881121

PATIENT
  Age: 65 Year
  Sex: Male

DRUGS (6)
  1. SPRAVATO [Suspect]
     Active Substance: ESKETAMINE
     Indication: Depression
     Dosage: ^^84 MG, 13 TOTAL DOSES^^
     Dates: start: 20240523, end: 20240821
  2. SPRAVATO [Suspect]
     Active Substance: ESKETAMINE
     Dosage: ^^84 MG, 1 TOTAL DOSE^^, RECENT DOSE
     Dates: start: 20240828, end: 20240828
  3. BUPROPION [Concomitant]
     Active Substance: BUPROPION
     Indication: Depression
  4. LYRICA [Concomitant]
     Active Substance: PREGABALIN
     Indication: Depression
     Route: 048
  5. DEXTROAMPHETAMINE SACCHARATE, AMPHETAMINE ASPARTATE, DEXTROAMPHETAMINE [Concomitant]
     Active Substance: AMPHETAMINE ASPARTATE\AMPHETAMINE SULFATE\DEXTROAMPHETAMINE SACCHARATE\DEXTROAMPHETAMINE SULFATE
     Indication: Attention deficit hyperactivity disorder
  6. TESTOSTERONE [Concomitant]
     Active Substance: TESTOSTERONE
     Indication: Blood testosterone decreased
     Route: 065

REACTIONS (4)
  - Chest pain [Recovered/Resolved]
  - Dyspnoea [Recovered/Resolved]
  - Sedation [Recovered/Resolved]
  - Dissociation [Recovered/Resolved]

NARRATIVE: CASE EVENT DATE: 20240828
